FAERS Safety Report 17263454 (Version 1)
Quarter: 2020Q1

REPORT INFORMATION
  Report Type: Spontaneous
  Country: US (occurrence: US)
  Receive Date: 20200112
  Receipt Date: 20200112
  Transmission Date: 20200409
  Serious: No
  Sender: FDA-Public Use
  Company Number: None

PATIENT
  Age: 61 Year
  Sex: Male
  Weight: 94.5 kg

DRUGS (4)
  1. MUCINEX [Concomitant]
     Active Substance: GUAIFENESIN
  2. NASACORT ALLERGY 24HR [Suspect]
     Active Substance: TRIAMCINOLONE ACETONIDE
     Indication: VASOMOTOR RHINITIS
     Dosage: ?          QUANTITY:120 SPRAY(S);?
     Route: 055
     Dates: start: 20191015, end: 20200108
  3. AFRIN [Concomitant]
     Active Substance: OXYMETAZOLINE
  4. PRILOSEC [Concomitant]
     Active Substance: OMEPRAZOLE MAGNESIUM

REACTIONS (7)
  - Muscle strain [None]
  - Disturbance in attention [None]
  - Insomnia [None]
  - Anxiety [None]
  - Emotional disorder [None]
  - Agitation [None]
  - Muscle spasms [None]

NARRATIVE: CASE EVENT DATE: 20200108
